FAERS Safety Report 17677020 (Version 1)
Quarter: 2020Q2

REPORT INFORMATION
  Report Type: Spontaneous
  Country: NL (occurrence: NL)
  Receive Date: 20200416
  Receipt Date: 20200416
  Transmission Date: 20200714
  Serious: Yes (Hospitalization)
  Sender: FDA-Public Use
  Company Number: NL-BAUSCH-BL-2020-011455

PATIENT
  Age: 66 Year
  Sex: Male

DRUGS (1)
  1. PLENVU [Suspect]
     Active Substance: ASCORBIC ACID\POLYETHYLENE GLYCOL 3350\POTASSIUM CHLORIDE\SODIUM ASCORBATE\SODIUM CHLORIDE\SODIUM SULFATE
     Indication: BOWEL PREPARATION
     Dosage: SPLIT DOSING
     Route: 065
     Dates: start: 20200401

REACTIONS (3)
  - Atrial fibrillation [Unknown]
  - Cerebral infarction [Unknown]
  - Malaise [Unknown]

NARRATIVE: CASE EVENT DATE: 20200402
